FAERS Safety Report 21683673 (Version 1)
Quarter: 2022Q4

REPORT INFORMATION
  Report Type: Spontaneous
  Country: US (occurrence: None)
  Receive Date: 20221202
  Receipt Date: 20221202
  Transmission Date: 20230113
  Serious: No
  Sender: FDA-Public Use
  Company Number: None

PATIENT
  Age: 43 Year
  Sex: Female
  Weight: 67.5 kg

DRUGS (1)
  1. SCOPOLAMINE TRANDERMAL SYSTEM [Suspect]
     Active Substance: SCOPOLAMINE
     Indication: Vertigo
     Dosage: OTHER QUANTITY : 1 PATCH(ES);?OTHER FREQUENCY : 1 EVERY 3 DAYS;?
     Route: 062
     Dates: start: 20221128, end: 20221202

REACTIONS (4)
  - Dizziness [None]
  - Application site burn [None]
  - Dry mouth [None]
  - Loss of personal independence in daily activities [None]

NARRATIVE: CASE EVENT DATE: 20221202
